FAERS Safety Report 4614631-7 (Version None)
Quarter: 2005Q2

REPORT INFORMATION
  Report Type: 
  Country: None (occurrence: None)
  Receive Date: 20050303
  Receipt Date: 20040105
  Transmission Date: 20051028
  Serious: Yes (Life-Threatening)
  Sender: FDA-Public Use
  Company Number: WAES 0410USA00122

PATIENT
  Age: 47 Year
  Sex: Female

DRUGS (6)
  1. PRINIVIL [Suspect]
     Indication: HYPERTENSION
     Dosage: 10 MG/DAILY/PO
     Route: 048
     Dates: start: 20031222
  2. LEXAPRO [Concomitant]
  3. SEROQUEL [Concomitant]
  4. ZOFRAN [Concomitant]
  5. [THERAPY UNSPECIFIED] [Concomitant]
  6. ANTINEOPLASTIC (UNSPECIFIED) [Concomitant]

REACTIONS (1)
  - HEADACHE [None]
